FAERS Safety Report 20821369 (Version 1)
Quarter: 2022Q2

REPORT INFORMATION
  Report Type: Spontaneous
  Country: US (occurrence: US)
  Receive Date: 20220512
  Receipt Date: 20220512
  Transmission Date: 20220721
  Serious: No
  Sender: FDA-Public Use
  Company Number: US-PFIZER INC-2021612326

PATIENT
  Age: 70 Year
  Sex: Female
  Weight: 70.3 kg

DRUGS (12)
  1. XELJANZ XR [Suspect]
     Active Substance: TOFACITINIB CITRATE
     Indication: Rheumatoid arthritis
     Dosage: 11 MG, DAILY
  2. XELJANZ XR [Suspect]
     Active Substance: TOFACITINIB CITRATE
     Dosage: 11 MG, DAILY
  3. XELJANZ XR [Suspect]
     Active Substance: TOFACITINIB CITRATE
     Dosage: 11 MG, DAILY
  4. LITHIUM [Concomitant]
     Active Substance: LITHIUM
     Dosage: 600MG(MANY YEARS 20+ YEARS)
  5. DIVALPROEX SODIUM [Concomitant]
     Active Substance: DIVALPROEX SODIUM
     Dosage: 500 MG
  6. GABANTIN [Concomitant]
     Dosage: 800 MG (2 YEARS EST)
  7. FETZIMA [Concomitant]
     Active Substance: LEVOMILNACIPRAN HYDROCHLORIDE
     Dosage: 120 MG (5 YEARS EST)
  8. ASPIRIN [Concomitant]
     Active Substance: ASPIRIN
     Dosage: 81 MG (2 MONTHS)
  9. LIOTHYRONINE [Concomitant]
     Active Substance: LIOTHYRONINE
     Dosage: 5 UG (YEARS)
  10. BUPROPION [Concomitant]
     Active Substance: BUPROPION
     Dosage: 300 MG (YEARS)
  11. LIPITOR [Concomitant]
     Active Substance: ATORVASTATIN CALCIUM
     Dosage: 10 MG (2 MONTHS)
  12. GEMTESA [Concomitant]
     Active Substance: VIBEGRON
     Dosage: 75 MG (3 MONTHS)

REACTIONS (4)
  - Product dose omission issue [Unknown]
  - Pain in extremity [Unknown]
  - Condition aggravated [Unknown]
  - Erythema [Unknown]
